FAERS Safety Report 9771965 (Version 1)
Quarter: 2013Q4

REPORT INFORMATION
  Report Type: Spontaneous
  Country: CH (occurrence: None)
  Receive Date: 20131001
  Receipt Date: 20131001
  Transmission Date: 20140711
  Serious: Yes (Other)
  Sender: FDA-Public Use
  Company Number: 20130446

PATIENT
  Age: 33 Year
  Sex: Female
  Weight: 52 kg

DRUGS (4)
  1. FERINJECT [Suspect]
     Indication: IRON DEFICIENCY ANAEMIA
     Dosage: 1000 MG OVER 90 MIN
     Dates: start: 20130709, end: 20130709
  2. MAGNE B6 (MAGNESIUM LACTATE; PYRIDOXINE HYDROCHLORIDE) [Concomitant]
  3. TARDYFERON B9(FERROUS SULFATE SESQUIHYDRATE;FOLIC ACID) [Concomitant]
  4. TIMOFEROL(FERROUS SULFATE, ASCORBIC ACID) [Concomitant]

REACTIONS (7)
  - Maternal exposure during pregnancy [None]
  - Pain in extremity [None]
  - Pain in extremity [None]
  - Skin discolouration [None]
  - Motor dysfunction [None]
  - Injection site pain [None]
  - Extravasation [None]
